FAERS Safety Report 5162487-9 (Version None)
Quarter: 2006Q4

REPORT INFORMATION
  Report Type: 
  Country: None (occurrence: None)
  Receive Date: 20061129
  Receipt Date: 20061129
  Transmission Date: 20070319
  Serious: No
  Sender: FDA-Public Use
  Company Number: None

PATIENT
  Age: 68 Year
  Sex: Male
  Weight: 78.4723 kg

DRUGS (1)
  1. ROSUVASTATIN 20 MG [Suspect]
     Indication: HYPERLIPIDAEMIA
     Dosage: 20 MG 1/2 TABLET QHS PO
     Route: 048
     Dates: start: 20060710, end: 20061016

REACTIONS (1)
  - MUSCLE SPASMS [None]
